FAERS Safety Report 20132574 (Version 2)
Quarter: 2022Q1

REPORT INFORMATION
  Report Type: Report from Study
  Country: BR (occurrence: BR)
  Receive Date: 20211130
  Receipt Date: 20220110
  Transmission Date: 20220424
  Serious: Yes (Hospitalization, Other)
  Sender: FDA-Public Use
  Company Number: BR-NOVARTISPH-NVSC2021BR267658

PATIENT
  Age: 45 Year
  Sex: Female

DRUGS (2)
  1. COSENTYX [Suspect]
     Active Substance: SECUKINUMAB
     Indication: Psoriatic arthropathy
     Dosage: 150 MG
     Route: 065
     Dates: start: 20210511, end: 20210906
  2. ADALIMUMAB [Suspect]
     Active Substance: ADALIMUMAB
     Indication: Product used for unknown indication
     Dosage: UNK
     Route: 065
     Dates: start: 202006, end: 202009

REACTIONS (9)
  - Pleural effusion [Unknown]
  - Pulmonary oedema [Unknown]
  - Pulmonary pain [Unknown]
  - COVID-19 [Recovering/Resolving]
  - Tuberculosis [Unknown]
  - Tuberculous pleurisy [Recovering/Resolving]
  - Chest pain [Recovered/Resolved]
  - Adverse drug reaction [Unknown]
  - Adverse drug reaction [Recovered/Resolved]

NARRATIVE: CASE EVENT DATE: 20210928
